FAERS Safety Report 16024641 (Version 1)
Quarter: 2019Q1

REPORT INFORMATION
  Report Type: Spontaneous
  Country: BR (occurrence: BR)
  Receive Date: 20190301
  Receipt Date: 20190301
  Transmission Date: 20190418
  Serious: Yes (Other)
  Sender: FDA-Public Use
  Company Number: BR-PFIZER INC-2019084883

PATIENT
  Sex: Female

DRUGS (1)
  1. PRISTIQ EXTENDED-RELEASE [Suspect]
     Active Substance: DESVENLAFAXINE SUCCINATE
     Dosage: UNK

REACTIONS (6)
  - Malaise [Unknown]
  - Feeling abnormal [Unknown]
  - Discomfort [Unknown]
  - Mental impairment [Unknown]
  - Hypoaesthesia [Unknown]
  - Reaction to excipient [Unknown]
